FAERS Safety Report 4393647-2 (Version None)
Quarter: 2004Q3

REPORT INFORMATION
  Report Type: 
  Country: None (occurrence: None)
  Receive Date: 20040709
  Receipt Date: 20040701
  Transmission Date: 20050211
  Serious: Yes (Death, Hospitalization)
  Sender: FDA-Public Use
  Company Number: US-MERCK-0407USA00440

PATIENT
  Age: 33 Year
  Sex: Female

DRUGS (10)
  1. ALPRAZOLAM [Concomitant]
     Route: 065
  2. ELSPAR [Suspect]
     Indication: ACUTE LYMPHOCYTIC LEUKAEMIA
     Route: 065
  3. BISACODYL [Concomitant]
     Route: 065
  4. CYCLOPHOSPHAMIDE [Concomitant]
     Route: 065
  5. DAUNORUBICIN [Concomitant]
     Route: 065
  6. DESIPRAMINE HYDROCHLORIDE [Concomitant]
     Route: 065
  7. HORMONAL CONTRACEPTIVES (UNSPECIFIED) [Concomitant]
     Route: 065
  8. METHOTREXATE [Concomitant]
     Route: 065
  9. PREDNISONE [Concomitant]
     Route: 065
  10. VINCRISTINE SULFATE [Concomitant]
     Route: 065

REACTIONS (2)
  - ACUTE LYMPHOCYTIC LEUKAEMIA [None]
  - DEATH [None]
